FAERS Safety Report 7577881-6 (Version None)
Quarter: 2011Q2

REPORT INFORMATION
  Report Type: 
  Country: None (occurrence: None)
  Receive Date: 20110628
  Receipt Date: 20110615
  Transmission Date: 20111010
  Serious: Yes (Hospitalization, Other)
  Sender: FDA-Public Use
  Company Number: US-ELI_LILLY_AND_COMPANY-US201106005050

PATIENT
  Sex: Female

DRUGS (16)
  1. CALCIUM CARBONATE [Concomitant]
     Dosage: 600 MG, UNK
  2. HYDROCHLOROTHIAZID [Concomitant]
     Dosage: 12.5 MG, UNK
  3. FORTEO [Suspect]
     Dosage: 20 UG, QD
     Dates: end: 20110528
  4. SEROQUEL [Concomitant]
     Dosage: 50 MG, UNK
  5. CYMBALTA [Concomitant]
     Dosage: 60 MG, UNK
  6. VALIUM [Concomitant]
     Dosage: 2 MG, TID
  7. VITAMIN D [Concomitant]
     Dosage: 1000 IU, UNK
  8. OMEPRAZOLE [Concomitant]
     Dosage: 20 MG, UNK
  9. TRICOR [Concomitant]
     Dosage: 145 MG, UNK
  10. NOVOLOG [Concomitant]
  11. MAGNESIUM OXIDE [Concomitant]
     Dosage: 400 MG, UNK
  12. LANTUS [Concomitant]
     Dosage: UNK, QD
  13. POTASSIUM [Concomitant]
     Dosage: 200 MEQ, BID
  14. SYNTHROID [Concomitant]
     Dosage: 50 UG, UNK
  15. FORTEO [Suspect]
     Indication: OSTEOPOROSIS
     Dosage: 20 UG, QD
     Dates: start: 20110201
  16. CLONAZEPAM [Concomitant]
     Dosage: 1 MG, UNK

REACTIONS (8)
  - LIMB INJURY [None]
  - SPEECH DISORDER [None]
  - HEMIPARESIS [None]
  - BLOOD GLUCOSE DECREASED [None]
  - MALAISE [None]
  - ISCHAEMIC STROKE [None]
  - DYSPHAGIA [None]
  - BLOOD GLUCOSE FLUCTUATION [None]
